FAERS Safety Report 7426936-5 (Version None)
Quarter: 2011Q2

REPORT INFORMATION
  Report Type: 
  Country: None (occurrence: None)
  Receive Date: 20110420
  Receipt Date: 20100120
  Transmission Date: 20111010
  Serious: No
  Sender: FDA-Public Use
  Company Number: US-BAYER-201012007NA

PATIENT
  Age: 21 Year
  Sex: Female

DRUGS (1)
  1. YAZ [Suspect]
     Indication: MENSTRUAL CYCLE MANAGEMENT
     Dosage: 1 DF, QD

REACTIONS (7)
  - TREMOR [None]
  - VISION BLURRED [None]
  - NERVOUSNESS [None]
  - TRI-IODOTHYRONINE INCREASED [None]
  - WEIGHT INCREASED [None]
  - DIZZINESS [None]
  - PALPITATIONS [None]
